FAERS Safety Report 12635993 (Version 1)
Quarter: 2016Q3

REPORT INFORMATION
  Report Type: Spontaneous
  Country: US (occurrence: US)
  Receive Date: 20160809
  Receipt Date: 20160809
  Transmission Date: 20161109
  Serious: No
  Sender: FDA-Public Use
  Company Number: US-PFIZER INC-2016376137

PATIENT
  Age: 50 Year
  Sex: Female

DRUGS (7)
  1. BEVACIZUMAB [Suspect]
     Active Substance: BEVACIZUMAB
     Indication: CERVIX CARCINOMA RECURRENT
     Dosage: UNK
     Dates: start: 2014, end: 201412
  2. CARBOPLATIN. [Suspect]
     Active Substance: CARBOPLATIN
     Dosage: X6, CYCLIC
     Dates: start: 2015
  3. BEVACIZUMAB [Suspect]
     Active Substance: BEVACIZUMAB
     Dosage: X6, CYCLIC
     Dates: start: 2015
  4. PACLITAXEL. [Suspect]
     Active Substance: PACLITAXEL
     Indication: CERVIX CARCINOMA RECURRENT
     Dosage: UNK
     Dates: start: 2014, end: 201412
  5. CARBOPLATIN. [Suspect]
     Active Substance: CARBOPLATIN
     Indication: CERVIX CARCINOMA RECURRENT
     Dosage: UNK
     Dates: start: 2014, end: 201412
  6. GEMCITABINE HYDROCHLORIDE. [Suspect]
     Active Substance: GEMCITABINE HYDROCHLORIDE
     Indication: CERVIX CARCINOMA RECURRENT
     Dosage: X6, CYCLIC
     Dates: start: 2015
  7. ABRAXANE [Suspect]
     Active Substance: PACLITAXEL
     Indication: CERVIX CARCINOMA RECURRENT
     Dosage: X6, CYCLIC
     Dates: start: 201512

REACTIONS (2)
  - Disease progression [Unknown]
  - Cervix carcinoma recurrent [Unknown]

NARRATIVE: CASE EVENT DATE: 201503
